FAERS Safety Report 10035002 (Version 1)
Quarter: 2014Q1

REPORT INFORMATION
  Report Type: Spontaneous
  Country: US (occurrence: None)
  Receive Date: 20140321
  Receipt Date: 20140321
  Transmission Date: 20141002
  Serious: Yes (Death, Hospitalization)
  Sender: FDA-Public Use
  Company Number: UTC-045944

PATIENT
  Age: 42 Year
  Sex: Male
  Weight: 90 kg

DRUGS (4)
  1. REMODULIN (5 MILLIGRAM/MILLILITERS, INJECTION, FOR INFUSION) (TREPROSTINIL SODIUM) [Suspect]
     Indication: PULMONARY ARTERIAL HYPERTENSION
     Dosage: 0.138 UG/KG, 1 IN 1 MIN
     Route: 042
     Dates: start: 20091001
  2. SILDENAFIL [Concomitant]
  3. TRACLEER [Concomitant]
  4. WARFARIN [Concomitant]

REACTIONS (1)
  - Death [None]
